FAERS Safety Report 5853673-0 (Version None)
Quarter: 2008Q3

REPORT INFORMATION
  Report Type: 
  Country: None (occurrence: None)
  Receive Date: 20080822
  Receipt Date: 20080812
  Transmission Date: 20090109
  Serious: Yes (Hospitalization)
  Sender: FDA-Public Use
  Company Number: NSADSS2002026367

PATIENT
  Sex: Female

DRUGS (9)
  1. REMICADE [Suspect]
     Route: 041
     Dates: start: 20010319
  2. REMICADE [Suspect]
     Indication: RHEUMATOID ARTHRITIS
     Route: 041
     Dates: start: 20010319
  3. ZOLOFT [Concomitant]
  4. METHOTREXATE SODIUM [Concomitant]
  5. FIORICET [Concomitant]
  6. LEVOTHYROXINE SODIUM [Concomitant]
  7. PREVACID [Concomitant]
  8. TYLENOL [Concomitant]
     Indication: DRUG USE FOR UNKNOWN INDICATION
  9. OXAZEPAM [Concomitant]

REACTIONS (1)
  - CEREBROVASCULAR ACCIDENT [None]
